FAERS Safety Report 10165671 (Version 1)
Quarter: 2014Q2

REPORT INFORMATION
  Report Type: Spontaneous
  Country: US (occurrence: US)
  Receive Date: 20140510
  Receipt Date: 20140510
  Transmission Date: 20141212
  Serious: No
  Sender: FDA-Public Use
  Company Number: US-BRISTOL-MYERS SQUIBB COMPANY-20571667

PATIENT
  Sex: Male

DRUGS (7)
  1. BYDUREON [Suspect]
     Dates: start: 2014, end: 201403
  2. LEVEMIR [Concomitant]
     Route: 058
  3. LISINOPRIL [Concomitant]
     Route: 048
  4. PAXIL [Concomitant]
     Route: 048
  5. XANAX [Concomitant]
     Route: 048
  6. ZOCOR [Concomitant]
     Route: 048
  7. ALLEGRA [Concomitant]
     Route: 048

REACTIONS (3)
  - Asthenia [Not Recovered/Not Resolved]
  - Abdominal pain [Not Recovered/Not Resolved]
  - Wheezing [Not Recovered/Not Resolved]
